FAERS Safety Report 4817406-9 (Version None)
Quarter: 2005Q4

REPORT INFORMATION
  Report Type: 
  Country: None (occurrence: None)
  Receive Date: 20051101
  Receipt Date: 20051021
  Transmission Date: 20060501
  Serious: Yes (Hospitalization)
  Sender: FDA-Public Use
  Company Number: US-AVENTIS-200518708US

PATIENT
  Age: 71 Year
  Sex: Female

DRUGS (7)
  1. LANTUS [Suspect]
     Indication: DIABETES MELLITUS MALNUTRITION-RELATED
     Dosage: DOSE UNIT: UNITS
     Dates: start: 20050101
  2. OPTICLIK (INSULIN INJECTION PEN) [Suspect]
     Indication: DIABETES MELLITUS MALNUTRITION-RELATED
     Dates: start: 20050101
  3. NOVOLOG [Suspect]
     Dosage: DOSE: UNK
  4. CARDIOVASCULAR SYSTEM DRUGS [Concomitant]
  5. GLUCOPHAGE [Concomitant]
  6. LASIX [Concomitant]
  7. PLAVIX [Concomitant]

REACTIONS (3)
  - CARDIAC OPERATION [None]
  - DIZZINESS [None]
  - FEELING ABNORMAL [None]
